FAERS Safety Report 6807952-0 (Version None)
Quarter: 2010Q2

REPORT INFORMATION
  Report Type: 
  Country: None (occurrence: None)
  Receive Date: 20100629
  Receipt Date: 20090422
  Transmission Date: 20101027
  Serious: No
  Sender: FDA-Public Use
  Company Number: US-PFIZER INC-2009182356

PATIENT
  Sex: Female
  Weight: 65.8 kg

DRUGS (9)
  1. ZYVOX [Suspect]
     Indication: STAPHYLOCOCCAL INFECTION
     Dosage: 600 MG, 2X/DAY
     Route: 048
     Dates: start: 20090101
  2. OMEPRAZOLE [Concomitant]
     Dosage: UNK
  3. LISINOPRIL [Concomitant]
     Dosage: UNK
  4. LIPITOR [Concomitant]
     Dosage: UNK
  5. MULTI-VITAMINS [Concomitant]
     Dosage: UNK
  6. DRUG, UNSPECIFIED [Concomitant]
     Dosage: UNK
  7. CELEBREX [Concomitant]
     Dosage: UNK
  8. GLIPIZIDE [Concomitant]
     Dosage: UNK
  9. LANTUS [Concomitant]
     Dosage: UNK

REACTIONS (1)
  - TONGUE DISCOLOURATION [None]
